FAERS Safety Report 9186532 (Version 2)
Quarter: 2013Q2

REPORT INFORMATION
  Report Type: Spontaneous
  Country: US (occurrence: US)
  Receive Date: 20130325
  Receipt Date: 20130503
  Transmission Date: 20140414
  Serious: Yes (Other)
  Sender: FDA-Public Use
  Company Number: US-JNJFOC-20130309917

PATIENT
  Age: 26 Year
  Sex: Male

DRUGS (1)
  1. INVEGA SUSTENNA [Suspect]
     Indication: PRODUCT USED FOR UNKNOWN INDICATION
     Route: 030
     Dates: start: 20130307

REACTIONS (6)
  - Paranoia [Unknown]
  - Confusional state [Unknown]
  - Pyrexia [Recovered/Resolved]
  - Pain [Unknown]
  - Anxiety [Unknown]
  - Injection site pain [Unknown]
